FAERS Safety Report 7360963-1 (Version None)
Quarter: 2011Q1

REPORT INFORMATION
  Report Type: 
  Country: None (occurrence: None)
  Receive Date: 20110318
  Receipt Date: 20110316
  Transmission Date: 20110831
  Serious: Yes (Other)
  Sender: FDA-Public Use
  Company Number: US-PFIZER INC-2011032825

PATIENT
  Sex: Male
  Weight: 83.9 kg

DRUGS (4)
  1. METOPROLOL SUCCINATE [Interacting]
     Indication: HYPERTENSION
     Dosage: 100 MG, DAILY
     Route: 048
  2. ACTOS [Concomitant]
     Dosage: 15 MG, UNK
  3. ACETYLSALICYLIC ACID [Concomitant]
     Dosage: 81 MG, UNK
  4. LIPITOR [Suspect]
     Indication: BLOOD CHOLESTEROL INCREASED
     Dosage: 20 MG, DAILY
     Route: 048

REACTIONS (2)
  - DRUG INTERACTION [None]
  - PRURITUS [None]
